FAERS Safety Report 22614980 (Version 1)
Quarter: 2023Q2

REPORT INFORMATION
  Report Type: Other
  Country: RO (occurrence: None)
  Receive Date: 20230619
  Receipt Date: 20230619
  Transmission Date: 20230722
  Serious: Yes (Life-Threatening, Hospitalization)
  Sender: FDA-Public Use
  Company Number: RO-ROCHE-3368564

PATIENT
  Age: 33 Year
  Sex: Female
  Weight: 65 kg

DRUGS (9)
  1. OCRELIZUMAB [Suspect]
     Active Substance: OCRELIZUMAB
     Indication: Relapsing-remitting multiple sclerosis
     Dosage: SUBSEQUENT DOSE RECEIVED ON 06/MAY/2021?DOSE LAST STUDY DRUG ADMIN PRIOR AE AND SAE IS 600 MG
     Route: 042
     Dates: start: 20210421, end: 20210421
  2. OCRELIZUMAB [Suspect]
     Active Substance: OCRELIZUMAB
     Dosage: SUBSEQUENT DOSE RECEIVED ON 20/APR/2022, 20/OCT/2022, 26/APR/2023
     Route: 042
     Dates: start: 20211020, end: 20211020
  3. METHYLPREDNISOLONE [Concomitant]
     Active Substance: METHYLPREDNISOLONE
     Route: 042
     Dates: start: 20230426, end: 20230426
  4. METHYLPREDNISOLONE [Concomitant]
     Active Substance: METHYLPREDNISOLONE
     Route: 042
     Dates: start: 20221020, end: 20221020
  5. DESLORATADINUM [Concomitant]
     Route: 048
     Dates: start: 20230426, end: 20230426
  6. DESLORATADINE [Concomitant]
     Active Substance: DESLORATADINE
     Route: 048
     Dates: start: 20221020, end: 20221020
  7. ACETAMINOPHEN [Concomitant]
     Active Substance: ACETAMINOPHEN
     Route: 048
     Dates: start: 20230426, end: 20230426
  8. ACETAMINOPHEN [Concomitant]
     Active Substance: ACETAMINOPHEN
     Route: 048
     Dates: start: 20221020, end: 20221020
  9. PANTOPRAZOLE [Concomitant]
     Active Substance: PANTOPRAZOLE
     Route: 042
     Dates: start: 20230426, end: 20230426

REACTIONS (3)
  - Pyelonephritis acute [Recovered/Resolved with Sequelae]
  - Asymptomatic bacteriuria [Recovering/Resolving]
  - Haemoglobin increased [Not Recovered/Not Resolved]

NARRATIVE: CASE EVENT DATE: 20210801
